FAERS Safety Report 8157579-6 (Version None)
Quarter: 2012Q1

REPORT INFORMATION
  Report Type: 
  Country: None (occurrence: None)
  Receive Date: 20120222
  Receipt Date: 20110513
  Transmission Date: 20120608
  Serious: No
  Sender: FDA-Public Use
  Company Number: US-ASTRAZENECA-2011SE10397

PATIENT
  Age: 65 Year
  Sex: Female
  Weight: 72.6 kg

DRUGS (12)
  1. PREMARIN [Concomitant]
  2. ASPIRIN [Concomitant]
  3. ZESTRIL [Suspect]
     Indication: HYPERTENSION
     Route: 048
     Dates: start: 20000101, end: 20101101
  4. ZESTRIL [Suspect]
     Route: 048
     Dates: start: 20101201
  5. TENORMIN [Suspect]
     Indication: HYPERTENSION
     Route: 048
     Dates: start: 20000101, end: 20101101
  6. NORVASC [Concomitant]
  7. HYDROCHLOROTHIAZIDE [Concomitant]
     Indication: HYPERTENSION
  8. THYROLAR [Concomitant]
     Indication: THYROID DISORDER
  9. TENORMIN [Suspect]
     Route: 048
     Dates: start: 20101101
  10. ZESTRIL [Suspect]
     Route: 048
     Dates: start: 20101101, end: 20101201
  11. CATAPRES [Concomitant]
  12. SPIRONOLACTONE [Concomitant]

REACTIONS (3)
  - BLOOD PRESSURE INCREASED [None]
  - MENIERE'S DISEASE [None]
  - HEADACHE [None]
